FAERS Safety Report 25461574 (Version 1)
Quarter: 2025Q2

REPORT INFORMATION
  Report Type: Report from Study
  Country: US (occurrence: US)
  Receive Date: 20250620
  Receipt Date: 20250620
  Transmission Date: 20250717
  Serious: Yes (Death)
  Sender: BAUSCH AND LOMB
  Company Number: US-BAUSCHBL-2025BNL010961

PATIENT
  Age: 83 Year
  Sex: Female

DRUGS (1)
  1. MIEBO [Suspect]
     Active Substance: PERFLUOROHEXYLOCTANE
     Indication: Product used for unknown indication
     Dosage: MUST SEE PACKAGE INSERT FOR ADMIN INSTRUCTIONS
     Route: 047

REACTIONS (1)
  - Death [Fatal]
